FAERS Safety Report 16899398 (Version 2)
Quarter: 2019Q4

REPORT INFORMATION
  Report Type: Spontaneous
  Country: US (occurrence: US)
  Receive Date: 20191009
  Receipt Date: 20191108
  Transmission Date: 20200122
  Serious: Yes (Death)
  Sender: FDA-Public Use
  Company Number: US-KARYOPHARM-2019KPT000596

PATIENT

DRUGS (2)
  1. XPOVIO [Suspect]
     Active Substance: SELINEXOR
     Indication: PLASMA CELL MYELOMA
     Dosage: 80 MG, 2X/WEEK
     Route: 048
     Dates: start: 201908
  2. XPOVIO [Suspect]
     Active Substance: SELINEXOR
     Dosage: 100 MG, WEEKLY
     Route: 048
     Dates: start: 20190828

REACTIONS (4)
  - Diarrhoea [Unknown]
  - Death [Fatal]
  - Thrombocytopenia [Unknown]
  - Toxicity to various agents [Unknown]
